FAERS Safety Report 17914459 (Version 1)
Quarter: 2020Q2

REPORT INFORMATION
  Report Type: Spontaneous
  Country: IN (occurrence: IN)
  Receive Date: 20200618
  Receipt Date: 20200618
  Transmission Date: 20200714
  Serious: Yes (Life-Threatening, Hospitalization)
  Sender: FDA-Public Use
  Company Number: IN-MYLANLABS-2020M1057154

PATIENT
  Age: 26 Year
  Sex: Male

DRUGS (1)
  1. IMATINIB MYLAN [Suspect]
     Active Substance: IMATINIB
     Indication: CHRONIC MYELOID LEUKAEMIA
     Dosage: 400 MILLIGRAM, QD
     Route: 065

REACTIONS (3)
  - Intestinal perforation [Recovered/Resolved]
  - Tachycardia [Unknown]
  - Gastrointestinal necrosis [Recovered/Resolved]
